FAERS Safety Report 7214120-X (Version None)
Quarter: 2010Q4

REPORT INFORMATION
  Report Type: 
  Country: None (occurrence: None)
  Receive Date: 20101126
  Receipt Date: 20091111
  Transmission Date: 20110411
  Serious: Yes (Other)
  Sender: FDA-Public Use
  Company Number: WAES 0908USA01679

PATIENT
  Age: 69 Year
  Sex: Female

DRUGS (2)
  1. FOSAMAX [Suspect]
     Indication: OSTEOPENIA
     Dosage: 35 MG/WKY/PO
     Route: 048
     Dates: start: 20020101, end: 20060101
  2. FOSAMAX [Suspect]
     Indication: OSTEOPOROSIS
     Dosage: 35 MG/WKY/PO
     Route: 048
     Dates: start: 20020101, end: 20060101

REACTIONS (23)
  - DENTAL CARIES [None]
  - DENTAL NECROSIS [None]
  - ELECTROCARDIOGRAM ABNORMAL [None]
  - FIBULA FRACTURE [None]
  - FRACTURE [None]
  - GINGIVAL DISORDER [None]
  - HYPERCHOLESTEROLAEMIA [None]
  - HYPERGLYCAEMIA [None]
  - HYPERKALAEMIA [None]
  - JAW DISORDER [None]
  - LIMB INJURY [None]
  - LOCALISED INFECTION [None]
  - LOOSE TOOTH [None]
  - ONYCHOMADESIS [None]
  - OSTEONECROSIS [None]
  - PALATAL DISORDER [None]
  - PERIODONTITIS [None]
  - RENAL DISORDER [None]
  - RENAL FAILURE [None]
  - RENAL FAILURE CHRONIC [None]
  - ROAD TRAFFIC ACCIDENT [None]
  - SUBCUTANEOUS ABSCESS [None]
  - TOOTH DISORDER [None]
